FAERS Safety Report 5164972-2 (Version None)
Quarter: 2006Q4

REPORT INFORMATION
  Report Type: 
  Country: None (occurrence: None)
  Receive Date: 20061124
  Receipt Date: 20061110
  Transmission Date: 20070319
  Serious: Yes (Other)
  Sender: FDA-Public Use
  Company Number: 2006142072

PATIENT
  Age: 40 Year
  Sex: Male

DRUGS (2)
  1. CABERGOLINE [Suspect]
     Indication: PARKINSON'S DISEASE
     Dosage: 6 MG (6 MG, 1 IN 1 D), ORAL
     Route: 048
  2. ANTI-PARKINSON AGENTS (ANTI-PARKINSON AGENTS) [Concomitant]

REACTIONS (1)
  - PATHOLOGICAL GAMBLING [None]
